FAERS Safety Report 4714096-0 (Version None)
Quarter: 2005Q2

REPORT INFORMATION
  Report Type: 
  Country: None (occurrence: None)
  Receive Date: 20050630
  Receipt Date: 20040824
  Transmission Date: 20051028
  Serious: Yes (Hospitalization)
  Sender: FDA-Public Use
  Company Number: 378669

PATIENT
  Sex: Female

DRUGS (1)
  1. INTERFERON ALFA-2A (INTERFERON ALFA-2A) [Suspect]

REACTIONS (1)
  - DIARRHOEA [None]
